FAERS Safety Report 14789739 (Version 3)
Quarter: 2018Q2

REPORT INFORMATION
  Report Type: Spontaneous
  Country: US (occurrence: US)
  Receive Date: 20180423
  Receipt Date: 20180525
  Transmission Date: 20180711
  Serious: No
  Sender: FDA-Public Use
  Company Number: US-PFIZER INC-2018108572

PATIENT
  Age: 69 Year
  Sex: Female

DRUGS (8)
  1. ZESTRIL [Concomitant]
     Active Substance: LISINOPRIL
     Dosage: 5 MG, DAILY
     Route: 048
  2. ARMOUR THYROID [Concomitant]
     Active Substance: THYROID, PORCINE
     Dosage: UNK
     Route: 048
  3. LISINOPRIL. [Concomitant]
     Active Substance: LISINOPRIL
     Dosage: 5 MG, DAILY
     Route: 048
  4. VITAMIN C [Concomitant]
     Active Substance: ASCORBIC ACID
     Dosage: 100 MG, UNK[1 TABLET ]
     Route: 048
  5. XELJANZ XR [Suspect]
     Active Substance: TOFACITINIB CITRATE
     Indication: ALOPECIA AREATA
  6. GARLIC. [Concomitant]
     Active Substance: GARLIC
     Dosage: 1 DF, UNK
     Route: 048
  7. XELJANZ XR [Suspect]
     Active Substance: TOFACITINIB CITRATE
     Indication: ALOPECIA
     Dosage: 11 MG, 1X/DAY
     Route: 048
     Dates: start: 201709
  8. BIOTIN/CALCIUM PHOSPHATE DIBASIC [Concomitant]
     Dosage: 1 MG, UNK

REACTIONS (4)
  - Breast pain [Unknown]
  - Drug effective for unapproved indication [Unknown]
  - Muscle spasms [Unknown]
  - Hair growth abnormal [Unknown]

NARRATIVE: CASE EVENT DATE: 20171226
